FAERS Safety Report 18031368 (Version 1)
Quarter: 2020Q3

REPORT INFORMATION
  Report Type: Spontaneous
  Country: MY (occurrence: MY)
  Receive Date: 20200716
  Receipt Date: 20200716
  Transmission Date: 20201103
  Serious: Yes (Hospitalization, Other)
  Sender: FDA-Public Use
  Company Number: NVSC2020MY198071

PATIENT
  Age: 57 Year
  Sex: Male

DRUGS (16)
  1. DEXAMETHASONE. [Suspect]
     Active Substance: DEXAMETHASONE
     Indication: DISSEMINATED TUBERCULOSIS
     Dosage: TAPERING OVER 4 WEEKS
     Route: 065
     Dates: end: 201709
  2. STREPTOMYCIN [Suspect]
     Active Substance: STREPTOMYCIN SULFATE
     Indication: DISSEMINATED TUBERCULOSIS
     Dosage: UNK
     Route: 030
  3. ISONIAZID. [Suspect]
     Active Substance: ISONIAZID
     Dosage: MAINTENANCE PHASE
     Route: 065
  4. RIFAMPICIN [Suspect]
     Active Substance: RIFAMPIN
     Dosage: UNK
     Route: 065
     Dates: end: 202004
  5. ETHAMBUTOL [Suspect]
     Active Substance: ETHAMBUTOL HYDROCHLORIDE
     Indication: DISSEMINATED TUBERCULOSIS
     Dosage: UNK
     Route: 065
  6. PYRAZINAMIDE. [Suspect]
     Active Substance: PYRAZINAMIDE
     Indication: DISSEMINATED TUBERCULOSIS
     Dosage: UNK
     Route: 065
  7. RIFAMPICIN [Suspect]
     Active Substance: RIFAMPIN
     Dosage: MAINTENANCE PHASE
     Route: 065
  8. ETHAMBUTOL [Suspect]
     Active Substance: ETHAMBUTOL HYDROCHLORIDE
     Dosage: UNK
     Route: 065
     Dates: end: 202004
  9. ISONIAZID. [Suspect]
     Active Substance: ISONIAZID
     Indication: DISSEMINATED TUBERCULOSIS
     Dosage: UNK
     Route: 065
  10. ISONIAZID. [Suspect]
     Active Substance: ISONIAZID
     Dosage: UNK
     Route: 065
     Dates: end: 202004
  11. RIFAMPICIN [Suspect]
     Active Substance: RIFAMPIN
     Indication: DISSEMINATED TUBERCULOSIS
     Dosage: UNK
     Route: 065
  12. DEXAMETHASONE. [Suspect]
     Active Substance: DEXAMETHASONE
     Dosage: TAPERING OVER 8 WEEKS
     Route: 065
  13. LINEZOLID. [Concomitant]
     Active Substance: LINEZOLID
     Indication: DISSEMINATED TUBERCULOSIS
     Dosage: UNK
     Route: 065
  14. ETIONAMIDE [Concomitant]
     Active Substance: ETHIONAMIDE
     Indication: DISSEMINATED TUBERCULOSIS
     Dosage: UNK
     Route: 065
  15. CLOFAZIMINE [Concomitant]
     Active Substance: CLOFAZIMINE
     Indication: DISSEMINATED TUBERCULOSIS
     Dosage: UNK
     Route: 065
  16. MOXIFLOXACIN. [Concomitant]
     Active Substance: MOXIFLOXACIN
     Indication: DISSEMINATED TUBERCULOSIS
     Dosage: UNK
     Route: 065
     Dates: end: 202004

REACTIONS (3)
  - Immune reconstitution inflammatory syndrome associated tuberculosis [Recovering/Resolving]
  - Hemiparesis [Recovered/Resolved]
  - Condition aggravated [Recovered/Resolved]
